FAERS Safety Report 5989758-8 (Version None)
Quarter: 2008Q4

REPORT INFORMATION
  Report Type: 
  Country: None (occurrence: None)
  Receive Date: 20081209
  Receipt Date: 20081129
  Transmission Date: 20090506
  Serious: Yes (Disabling)
  Sender: FDA-Public Use
  Company Number: ADE2008-0398

PATIENT
  Age: 50 Year
  Weight: 70 kg

DRUGS (7)
  1. SIMVASTATIN [Suspect]
     Indication: DIABETES MELLITUS
     Dosage: 40MG - ORAL
     Route: 048
     Dates: start: 20080101, end: 20080101
  2. SIMVASTATIN [Suspect]
     Indication: HYPERLIPIDAEMIA
     Dosage: 40MG - ORAL
     Route: 048
     Dates: start: 20080101, end: 20080101
  3. ASPIRIN [Concomitant]
  4. GLIMEPIRIDE [Concomitant]
  5. LEVERMIR SQ [Concomitant]
  6. METFORMIN HCL [Concomitant]
  7. NOVORAPID SQ [Concomitant]

REACTIONS (1)
  - PANIC ATTACK [None]
